FAERS Safety Report 6345261-7 (Version None)
Quarter: 2009Q3

REPORT INFORMATION
  Report Type: 
  Country: None (occurrence: None)
  Receive Date: 20090909
  Receipt Date: 20090824
  Transmission Date: 20100115
  Serious: Yes (Hospitalization)
  Sender: FDA-Public Use
  Company Number: PHHY2009TW31525

PATIENT
  Sex: Female
  Weight: 41 kg

DRUGS (6)
  1. ICL670A ICL+ [Suspect]
     Indication: MYELODYSPLASTIC SYNDROME
     Dosage: 125 MG, 7, QD
     Dates: start: 20090709
  2. XANTHIUM [Concomitant]
     Indication: CHRONIC OBSTRUCTIVE PULMONARY DISEASE
     Dosage: 200 MG, 1, Q12H
     Dates: start: 20090611
  3. MEDICON A [Concomitant]
     Indication: COUGH
     Dosage: 1 DF, TID
     Dates: start: 20090306
  4. COMPESOLON [Concomitant]
     Indication: CHRONIC OBSTRUCTIVE PULMONARY DISEASE
     Dosage: 1 DF, QD
     Dates: start: 20090611
  5. COMPESOLON [Concomitant]
     Indication: MYELODYSPLASTIC SYNDROME
  6. SPIRIVA [Concomitant]
     Indication: CHRONIC OBSTRUCTIVE PULMONARY DISEASE
     Dosage: 1 DF, QD
     Dates: start: 20090611

REACTIONS (17)
  - CHEST X-RAY ABNORMAL [None]
  - CHILLS [None]
  - CONCOMITANT DISEASE AGGRAVATED [None]
  - DECREASED APPETITE [None]
  - DEPRESSED LEVEL OF CONSCIOUSNESS [None]
  - HAEMOGLOBIN DECREASED [None]
  - HYPOKALAEMIA [None]
  - INTRACRANIAL HAEMATOMA [None]
  - NEUTROPHIL COUNT DECREASED [None]
  - PNEUMONIA [None]
  - PYREXIA [None]
  - SEPSIS [None]
  - SOMNOLENCE [None]
  - SPUTUM ABNORMAL [None]
  - SUBARACHNOID HAEMORRHAGE [None]
  - THROMBOCYTOPENIA [None]
  - WHITE BLOOD CELL COUNT DECREASED [None]
